FAERS Safety Report 8124429-3 (Version None)
Quarter: 2012Q1

REPORT INFORMATION
  Report Type: 
  Country: None (occurrence: None)
  Receive Date: 20120209
  Receipt Date: 20120203
  Transmission Date: 20120608
  Serious: Yes (Hospitalization, Other)
  Sender: FDA-Public Use
  Company Number: US-PFIZER INC-2011156998

PATIENT
  Sex: Female

DRUGS (2)
  1. CHANTIX [Suspect]
     Indication: SMOKING CESSATION THERAPY
     Dosage: 0.5 MG ONCE PER DAY
     Dates: start: 20090621
  2. CHANTIX [Suspect]
     Dosage: 1 MG TWICE PER DAY
     Dates: end: 20090706

REACTIONS (5)
  - AGGRESSION [None]
  - SCAR [None]
  - DEPRESSION [None]
  - SUICIDE ATTEMPT [None]
  - ANXIETY [None]
